FAERS Safety Report 24367918 (Version 1)
Quarter: 2024Q3

REPORT INFORMATION
  Report Type: Spontaneous
  Country: FR (occurrence: FR)
  Receive Date: 20240926
  Receipt Date: 20240926
  Transmission Date: 20241016
  Serious: Yes (Life-Threatening)
  Sender: BAUSCH AND LOMB
  Company Number: None

PATIENT
  Age: 18 Year
  Sex: Female

DRUGS (7)
  1. DIAZEPAM [Suspect]
     Active Substance: DIAZEPAM
     Indication: Drug abuse
     Route: 065
     Dates: start: 20231126
  2. ZOPICLONE [Suspect]
     Active Substance: ZOPICLONE
     Indication: Drug abuse
     Route: 065
     Dates: start: 20231126
  3. BROMAZEPAM [Suspect]
     Active Substance: BROMAZEPAM
     Indication: Product used for unknown indication
     Route: 065
     Dates: start: 20231126
  4. MIDOMAFETAMINE [Suspect]
     Active Substance: MIDOMAFETAMINE
     Indication: Product used for unknown indication
     Dosage: MDMA
     Route: 065
     Dates: start: 20231126
  5. CANNABIS SATIVA SUBSP. INDICA TOP [Suspect]
     Active Substance: CANNABIS SATIVA SUBSP. INDICA TOP
     Indication: Product used for unknown indication
     Route: 065
     Dates: start: 20231126
  6. METHYLPHENIDATE HYDROCHLORIDE [Suspect]
     Active Substance: METHYLPHENIDATE HYDROCHLORIDE
     Indication: Drug abuse
     Route: 065
     Dates: start: 20231126
  7. BUPRENORPHINE [Suspect]
     Active Substance: BUPRENORPHINE
     Indication: Drug abuse
     Route: 065
     Dates: start: 20231126

REACTIONS (1)
  - Cardiogenic shock [Recovering/Resolving]

NARRATIVE: CASE EVENT DATE: 20231126
